FAERS Safety Report 24362274 (Version 1)
Quarter: 2024Q3

REPORT INFORMATION
  Report Type: Spontaneous
  Country: CN (occurrence: CN)
  Receive Date: 20240925
  Receipt Date: 20240925
  Transmission Date: 20241017
  Serious: Yes (Other)
  Sender: PFIZER
  Company Number: CN-PFIZER INC-PV202400123634

PATIENT
  Age: 51 Year
  Sex: Male
  Weight: 63 kg

DRUGS (1)
  1. CIBINQO [Suspect]
     Active Substance: ABROCITINIB
     Indication: Symptomatic treatment
     Dosage: 100 MG, 1X/DAY
     Route: 048
     Dates: start: 20240822, end: 20240823

REACTIONS (8)
  - Rash [Recovering/Resolving]
  - Swelling face [Recovering/Resolving]
  - Burning sensation [Unknown]
  - Erythema [Unknown]
  - Swelling [Recovering/Resolving]
  - Peripheral swelling [Recovering/Resolving]
  - Effusion [Unknown]
  - Skin laceration [Unknown]

NARRATIVE: CASE EVENT DATE: 20240822
